FAERS Safety Report 18333691 (Version 1)
Quarter: 2020Q4

REPORT INFORMATION
  Report Type: Spontaneous
  Country: US (occurrence: US)
  Receive Date: 20201001
  Receipt Date: 20201001
  Transmission Date: 20210113
  Serious: No
  Sender: FDA-Public Use
  Company Number: US-TEVA-2020-US-1833623

PATIENT
  Sex: Female

DRUGS (2)
  1. SOLIFENACIN SUCCINATE TEVA [Suspect]
     Active Substance: SOLIFENACIN SUCCINATE
     Route: 065
     Dates: start: 20200919
  2. SOLIFENACIN SUCCINATE TEVA [Suspect]
     Active Substance: SOLIFENACIN SUCCINATE
     Route: 065
     Dates: start: 20200918

REACTIONS (3)
  - Fatigue [Unknown]
  - Limb discomfort [Unknown]
  - Vision blurred [Recovered/Resolved]

NARRATIVE: CASE EVENT DATE: 202009
